FAERS Safety Report 4395919-4 (Version None)
Quarter: 2004Q3

REPORT INFORMATION
  Report Type: 
  Country: None (occurrence: None)
  Receive Date: 20040709
  Receipt Date: 20040624
  Transmission Date: 20050211
  Serious: Yes (Other)
  Sender: FDA-Public Use
  Company Number: 2004-0007191

PATIENT
  Age: 27 Year
  Sex: Male
  Weight: 52.6173 kg

DRUGS (10)
  1. EMTRICITABINE (EMTRICITABINE) [Suspect]
     Indication: HIV INFECTION
     Dates: start: 20040426, end: 20040614
  2. TENOFOVIR DISOPROXIL FUMARATE / EMTRICITABINE [Suspect]
     Indication: HIV INFECTION
     Dates: start: 20040527, end: 20040614
  3. STAVUDINE (STAVUDINE) [Suspect]
     Indication: HIV INFECTION
     Dates: start: 20040426, end: 20040527
  4. KALETRA [Suspect]
     Indication: HIV INFECTION
     Dates: start: 20040426
  5. NSAIDS (NSAID'S) [Concomitant]
  6. AZITHROMYCIN [Concomitant]
  7. ETHAMBUTOL HCL [Concomitant]
  8. MYCELEX [Concomitant]
  9. MEPRON [Concomitant]
  10. ACETAMINOPHEN [Concomitant]

REACTIONS (7)
  - ANAEMIA [None]
  - CONFUSIONAL STATE [None]
  - DIARRHOEA [None]
  - MYCOBACTERIUM AVIUM COMPLEX INFECTION [None]
  - PROGRESSIVE MULTIFOCAL LEUKOENCEPHALOPATHY [None]
  - RENAL DISORDER [None]
  - RENAL FAILURE ACUTE [None]
